FAERS Safety Report 6205947-1 (Version None)
Quarter: 2009Q2

REPORT INFORMATION
  Report Type: 
  Country: None (occurrence: None)
  Receive Date: 20090527
  Receipt Date: 20090527
  Transmission Date: 20091009
  Serious: Yes (Other)
  Sender: FDA-Public Use
  Company Number: None

PATIENT
  Sex: Female
  Weight: 61.5078 kg

DRUGS (2)
  1. CHANTIX [Suspect]
     Indication: TOBACCO ABUSE
     Dosage: 1 MG TWICE DAILY PO
     Route: 048
     Dates: start: 20090306, end: 20090514
  2. CHANTIX [Suspect]
     Indication: TOBACCO ABUSE
     Dosage: 1 MG TWICE DAILY PO
     Route: 048
     Dates: start: 20080609

REACTIONS (2)
  - HALLUCINATION, AUDITORY [None]
  - SELF-INJURIOUS IDEATION [None]
